FAERS Safety Report 9137923 (Version 1)
Quarter: 2013Q1

REPORT INFORMATION
  Report Type: Spontaneous
  Country: US (occurrence: US)
  Receive Date: 20130304
  Receipt Date: 20130304
  Transmission Date: 20140127
  Serious: No
  Sender: FDA-Public Use
  Company Number: US-ABBOTT-13P-163-1038349-00

PATIENT
  Sex: Female

DRUGS (2)
  1. ANDROGEL [Suspect]
     Indication: HORMONE REPLACEMENT THERAPY
  2. ESTRADIOL [Concomitant]
     Indication: HORMONE REPLACEMENT THERAPY

REACTIONS (1)
  - Off label use [Unknown]
